FAERS Safety Report 7166930-5 (Version None)
Quarter: 2010Q4

REPORT INFORMATION
  Report Type: 
  Country: None (occurrence: None)
  Receive Date: 20101216
  Receipt Date: 20101009
  Transmission Date: 20110411
  Serious: Yes (Hospitalization)
  Sender: FDA-Public Use
  Company Number: US-US-EMD SERONO, INC.-234141J09USA

PATIENT
  Sex: Female

DRUGS (4)
  1. REBIF [Suspect]
     Indication: MULTIPLE SCLEROSIS
     Route: 058
     Dates: start: 20050808, end: 20080101
  2. REBIF [Suspect]
     Route: 058
     Dates: start: 20080820
  3. LAMICTAL [Concomitant]
     Indication: NEURALGIA
  4. ANTIDEPRESSANT [Concomitant]
     Indication: DEPRESSION

REACTIONS (2)
  - APPENDICITIS [None]
  - SEPSIS [None]
